FAERS Safety Report 5050332-1 (Version None)
Quarter: 2006Q3

REPORT INFORMATION
  Report Type: 
  Country: None (occurrence: None)
  Receive Date: 20060713
  Receipt Date: 20060606
  Transmission Date: 20061208
  Serious: Yes (Hospitalization)
  Sender: FDA-Public Use
  Company Number: JP-MERCK-0606USA02215

PATIENT
  Age: 71 Year
  Sex: Female

DRUGS (7)
  1. PEPCID [Suspect]
     Indication: GASTRITIS
     Route: 042
     Dates: start: 20060526, end: 20060530
  2. JUVELA [Concomitant]
     Indication: HYPERTENSION
     Route: 048
     Dates: start: 19990101
  3. AMLODIN [Concomitant]
     Indication: HYPERTENSION
     Route: 048
     Dates: start: 19990101
  4. ASPIRIN [Concomitant]
     Indication: CEREBRAL INFARCTION
     Route: 048
     Dates: start: 19990101
  5. PEPCID RPD [Suspect]
     Indication: GASTRITIS
     Route: 048
     Dates: start: 19990101
  6. HOKUNALIN [Concomitant]
     Indication: ASTHMA
     Route: 048
     Dates: start: 19990101
  7. FLUTIDE [Concomitant]
     Indication: ASTHMA
     Route: 065
     Dates: start: 19990101

REACTIONS (4)
  - BLOOD CREATINE PHOSPHOKINASE INCREASED [None]
  - HEPATIC FUNCTION ABNORMAL [None]
  - PLEURAL EFFUSION [None]
  - RENAL IMPAIRMENT [None]
